FAERS Safety Report 20993569 (Version 5)
Quarter: 2022Q4

REPORT INFORMATION
  Report Type: Spontaneous
  Country: JP (occurrence: JP)
  Receive Date: 20220622
  Receipt Date: 20221026
  Transmission Date: 20230112
  Serious: Yes (Death, Life-Threatening, Hospitalization, Other)
  Sender: FDA-Public Use
  Company Number: JP-JAZZ-2022-JP-016888

PATIENT
  Age: 45 Year
  Sex: Male
  Weight: 61.1 kg

DRUGS (6)
  1. DEFITELIO [Suspect]
     Active Substance: DEFIBROTIDE SODIUM
     Indication: Venoocclusive liver disease
     Dosage: 25 MILLIGRAM/KILOGRAM, DAILY
     Route: 042
     Dates: start: 20220503, end: 20220601
  2. TEMCELL [Concomitant]
     Indication: Diarrhoea
     Dosage: UNK
     Dates: start: 2022
  3. RUXOLITINIB [Concomitant]
     Active Substance: RUXOLITINIB
     Indication: Diarrhoea
     Dosage: UNK
     Dates: start: 2022
  4. METHYLPREDNISOLONE [Concomitant]
     Active Substance: METHYLPREDNISOLONE
     Indication: Product used for unknown indication
     Dosage: 2 MILLIGRAM/KILOGRAM
     Dates: start: 2022
  5. PLATELETS [Concomitant]
     Active Substance: HUMAN PLATELET, ALLOGENIC
     Indication: Product used for unknown indication
     Dosage: UNK
  6. CARBAZOCHROME SODIUM SULFONATE [Concomitant]
     Active Substance: CARBAZOCHROME SODIUM SULFONATE
     Indication: Pulmonary haemorrhage
     Dosage: UNK
     Dates: start: 20220601

REACTIONS (5)
  - Pulmonary haemorrhage [Fatal]
  - Acute graft versus host disease [Fatal]
  - Hypotension [Not Recovered/Not Resolved]
  - Thrombotic microangiopathy [Unknown]
  - Diarrhoea [Recovered/Resolved]

NARRATIVE: CASE EVENT DATE: 20220101
